FAERS Safety Report 8169563 (Version 4)
Quarter: 2012Q4

REPORT INFORMATION
  Report Type: 
  Country: CA (occurrence: CA)
  Receive Date: 20111005
  Receipt Date: 20121001
  Transmission Date: 20130627
  Serious: Yes (Other)
  Sender: FDA-Public Use
  Company Number: PHHY2011CA87478

PATIENT
  Age: 59 Year
  Sex: Female

DRUGS (11)
  1. ACLASTA [Suspect]
     Indication: OSTEOPOROSIS
     Dosage: 5 mg, UNK
     Route: 042
     Dates: start: 20101014
  2. ACLASTA [Suspect]
     Dosage: 5 mg, UNK
     Route: 042
     Dates: start: 20111020
  3. OXYCONTIN [Concomitant]
  4. ATIVAN [Concomitant]
  5. SYNTHROID [Concomitant]
  6. EFFEXOR [Concomitant]
  7. ACIDOPHILUS [Concomitant]
  8. OXYCOCET [Concomitant]
  9. ATORVASTATIN [Concomitant]
     Dosage: 20 mg, UNK
  10. MAGNESIUM SULFATE [Concomitant]
     Dosage: 10 mg 4-6/day
  11. ZOFRAN [Concomitant]
     Dosage: 4 mg, PRN

REACTIONS (4)
  - Helicobacter infection [Unknown]
  - Diarrhoea [Unknown]
  - Vomiting [Unknown]
  - Cough [Unknown]
